FAERS Safety Report 6038823-8 (Version None)
Quarter: 2009Q1

REPORT INFORMATION
  Report Type: 
  Country: None (occurrence: None)
  Receive Date: 20090114
  Receipt Date: 20090114
  Transmission Date: 20090719
  Serious: Yes (Other)
  Sender: FDA-Public Use
  Company Number: None

PATIENT
  Age: 9 Year
  Sex: Male
  Weight: 37.195 kg

DRUGS (2)
  1. SEROQUEL [Suspect]
     Indication: SLEEP DISORDER THERAPY
     Dosage: 300 MG AT NIGHT PO
     Route: 048
     Dates: start: 20080701, end: 20081231
  2. SEROQUEL [Suspect]
     Indication: SLEEP DISORDER THERAPY
     Dosage: 300 MG -3-100 MG TABLETS- AT NIGHT PO
     Route: 048
     Dates: start: 20080701, end: 20081231

REACTIONS (9)
  - ABNORMAL BEHAVIOUR [None]
  - AGGRESSION [None]
  - ENURESIS [None]
  - HALLUCINATIONS, MIXED [None]
  - HOMICIDAL IDEATION [None]
  - PANIC ATTACK [None]
  - PARANOIA [None]
  - SUICIDAL IDEATION [None]
  - WEIGHT INCREASED [None]
